FAERS Safety Report 9859631 (Version 1)
Quarter: 2014Q1

REPORT INFORMATION
  Report Type: Spontaneous
  Country: CL (occurrence: CL)
  Receive Date: 20140131
  Receipt Date: 20140131
  Transmission Date: 20141002
  Serious: Yes (Other)
  Sender: FDA-Public Use
  Company Number: CL-PFIZER INC-2014026940

PATIENT
  Age: 62 Year
  Sex: Female

DRUGS (6)
  1. AZULFIDINE [Suspect]
     Indication: PSORIATIC ARTHROPATHY
     Dosage: UNK
     Route: 048
     Dates: start: 2010
  2. AZULFIDINE [Suspect]
     Dosage: UNK
     Route: 048
  3. CELEBRA [Suspect]
     Indication: PSORIATIC ARTHROPATHY
     Route: 048
  4. METHOTREXATE [Suspect]
     Indication: PSORIATIC ARTHROPATHY
     Dosage: UNK
     Route: 048
     Dates: start: 2008
  5. PREDNISONE [Concomitant]
  6. FOLIC ACID [Concomitant]

REACTIONS (4)
  - Disease progression [Not Recovered/Not Resolved]
  - Elbow deformity [Not Recovered/Not Resolved]
  - Hand deformity [Not Recovered/Not Resolved]
  - Urticaria [Recovered/Resolved]
